FAERS Safety Report 23197144 (Version 1)
Quarter: 2023Q4

REPORT INFORMATION
  Report Type: Spontaneous
  Country: BR (occurrence: BR)
  Receive Date: 20231117
  Receipt Date: 20231117
  Transmission Date: 20240110
  Serious: Yes (Hospitalization)
  Sender: FDA-Public Use
  Company Number: BR-DSJP-DSE-2023-146944

PATIENT
  Age: 76 Year
  Sex: Male
  Weight: 104 kg

DRUGS (2)
  1. EDOXABAN TOSYLATE [Suspect]
     Active Substance: EDOXABAN TOSYLATE
     Indication: Ventricular tachycardia
     Dosage: 30 MG, QD
     Route: 065
     Dates: start: 20230520, end: 20230612
  2. ASPIRIN [Suspect]
     Active Substance: ASPIRIN
     Indication: Product used for unknown indication
     Dosage: 100 MG, QD
     Route: 065
     Dates: end: 20230612

REACTIONS (3)
  - Neck pain [Unknown]
  - Back pain [Unknown]
  - Epistaxis [Recovered/Resolved]

NARRATIVE: CASE EVENT DATE: 20230612
